FAERS Safety Report 23013444 (Version 1)
Quarter: 2023Q4

REPORT INFORMATION
  Report Type: Spontaneous
  Country: CN (occurrence: CN)
  Receive Date: 20231001
  Receipt Date: 20231001
  Transmission Date: 20240109
  Serious: Yes (Hospitalization, Other)
  Sender: FDA-Public Use
  Company Number: CN-SA-SAC20230927001208

PATIENT
  Age: 81 Year
  Sex: Male
  Weight: 72 kg

DRUGS (4)
  1. PLAVIX [Suspect]
     Active Substance: CLOPIDOGREL BISULFATE
     Indication: Cardiovascular disorder
     Dosage: 75 MG, QD
     Route: 048
     Dates: start: 20190621, end: 20230917
  2. PLAVIX [Suspect]
     Active Substance: CLOPIDOGREL BISULFATE
     Indication: Cerebrovascular disorder
  3. ASPIRIN [Suspect]
     Active Substance: ASPIRIN
     Indication: Cardiovascular disorder
     Dosage: 100 MG, QD
     Route: 048
     Dates: start: 20190621, end: 20230917
  4. ASPIRIN [Suspect]
     Active Substance: ASPIRIN
     Indication: Cerebrovascular disorder

REACTIONS (8)
  - Upper gastrointestinal haemorrhage [Recovering/Resolving]
  - Melaena [Recovering/Resolving]
  - Diarrhoea [Recovering/Resolving]
  - Haematemesis [Recovering/Resolving]
  - Gastrointestinal oedema [Recovering/Resolving]
  - Mucosal hyperaemia [Recovering/Resolving]
  - Ulcer [Recovering/Resolving]
  - Thrombosis [Recovering/Resolving]

NARRATIVE: CASE EVENT DATE: 20230917
